FAERS Safety Report 9815081 (Version 2)
Quarter: 2014Q1

REPORT INFORMATION
  Report Type: Report from Study
  Country: DE (occurrence: DE)
  Receive Date: 20140114
  Receipt Date: 20140115
  Transmission Date: 20141002
  Serious: Yes (Hospitalization)
  Sender: FDA-Public Use
  Company Number: DE-ROCHE-1330594

PATIENT
  Age: 45 Year
  Sex: Female
  Weight: 45 kg

DRUGS (5)
  1. BEVACIZUMAB [Suspect]
     Indication: OVARIAN CANCER
     Dosage: LAST DOSE PRIOR TO SAE ON: 23/NOV/2013
     Route: 065
     Dates: start: 20131107, end: 20131123
  2. CARBOPLATIN [Suspect]
     Indication: OVARIAN CANCER
     Dosage: LAST DOSE PRIOR TO SAE ON: 23/NOV/2013
     Route: 065
     Dates: start: 20131107, end: 20131123
  3. GEMCITABINE [Suspect]
     Indication: OVARIAN CANCER
     Dosage: LAST DOSE PRIOR TO SAE ON: 05/DEC/2013
     Route: 065
     Dates: start: 20131107, end: 20131206
  4. PANTOPRAZOL [Concomitant]
     Route: 048
  5. CLEXANE [Concomitant]
     Route: 058

REACTIONS (1)
  - Migraine [Recovered/Resolved]
